FAERS Safety Report 19623003 (Version 5)
Quarter: 2022Q2

REPORT INFORMATION
  Report Type: Report from Study
  Country: NL (occurrence: None)
  Receive Date: 20210728
  Receipt Date: 20220422
  Transmission Date: 20220720
  Serious: Yes (Hospitalization)
  Sender: FDA-Public Use
  Company Number: NL-ROCHE-2866579

PATIENT
  Age: 79 Year
  Sex: Male

DRUGS (3)
  1. OBINUTUZUMAB [Suspect]
     Active Substance: OBINUTUZUMAB
     Indication: Chronic lymphocytic leukaemia
     Dosage: THE LAST DOSE OF OBINUTUZUMAB WAS 100 MG ON 06/JUL/2021?THE LAST DOSE OF OBINUTUZUMAB WAS 1000 MG ON
     Route: 042
     Dates: start: 20210706, end: 20210927
  2. VENETOCLAX [Suspect]
     Active Substance: VENETOCLAX
     Indication: Chronic lymphocytic leukaemia
     Dosage: THE LAST DOSE OF VENETOCLAX WAS ON 28/SEP/2021
     Route: 048
     Dates: start: 20210727, end: 20210928
  3. SIMVASTATIN [Concomitant]
     Active Substance: SIMVASTATIN

REACTIONS (2)
  - Blood lactate dehydrogenase increased [Recovered/Resolved with Sequelae]
  - Gallbladder obstruction [Recovered/Resolved]

NARRATIVE: CASE EVENT DATE: 20210706
